FAERS Safety Report 5861507-3 (Version None)
Quarter: 2008Q3

REPORT INFORMATION
  Report Type: 
  Country: None (occurrence: None)
  Receive Date: 20080827
  Receipt Date: 20080527
  Transmission Date: 20090109
  Serious: No
  Sender: FDA-Public Use
  Company Number: US-ABBOTT-08P-163-0453382-00

PATIENT
  Sex: Male
  Weight: 70.824 kg

DRUGS (8)
  1. COATED PDS [Suspect]
     Indication: RASH GENERALISED
     Dosage: 500MG TID
     Route: 048
     Dates: start: 20080526
  2. ATENOLOL [Concomitant]
     Indication: HYPERTENSION
     Route: 048
  3. LOSARTAN POTASSIUM [Concomitant]
     Indication: HYPERTENSION
     Route: 048
  4. TYLOX [Concomitant]
     Indication: CERVICAL SPINAL STENOSIS
     Route: 048
  5. LANSOPRAZOLE [Concomitant]
     Indication: GASTROOESOPHAGEAL REFLUX DISEASE
     Route: 048
  6. ATORVASTATIN CALCIUM [Concomitant]
     Indication: BLOOD CHOLESTEROL INCREASED
     Route: 048
  7. GABAPENTIN [Concomitant]
     Indication: CERVICAL SPINAL STENOSIS
     Route: 048
  8. SOLIFENACIN [Concomitant]
     Indication: POLLAKIURIA
     Route: 048

REACTIONS (2)
  - ASTHENIA [None]
  - FLUSHING [None]
